FAERS Safety Report 23087907 (Version 1)
Quarter: 2023Q4

REPORT INFORMATION
  Report Type: Spontaneous
  Country: DE (occurrence: DE)
  Receive Date: 20231020
  Receipt Date: 20231020
  Transmission Date: 20240110
  Serious: No
  Sender: FDA-Public Use
  Company Number: DE-ALKEM LABORATORIES LIMITED-DE-ALKEM-2023-07769

PATIENT
  Age: 31 Year
  Sex: Female
  Weight: 51 kg

DRUGS (2)
  1. FINGOLIMOD [Suspect]
     Active Substance: FINGOLIMOD
     Indication: Relapsing multiple sclerosis
     Dosage: 0.5 MILLIGRAM, QD (EVERY 1 DAY)
     Route: 048
     Dates: start: 20201001
  2. DESOGESTREL\ETHINYL ESTRADIOL [Concomitant]
     Active Substance: DESOGESTREL\ETHINYL ESTRADIOL
     Indication: Contraception
     Dosage: 1 DOSAGE FORM, QD (EVERY 1 DAY)
     Route: 065

REACTIONS (1)
  - Fructose intolerance [Not Recovered/Not Resolved]

NARRATIVE: CASE EVENT DATE: 20230501
